FAERS Safety Report 8957034 (Version 1)
Quarter: 2012Q4

REPORT INFORMATION
  Report Type: Report from Study
  Country: US (occurrence: US)
  Receive Date: 20121211
  Receipt Date: 20121211
  Transmission Date: 20130627
  Serious: Yes (Hospitalization)
  Sender: FDA-Public Use
  Company Number: US-US-EMD SERONO, INC.-7180531

PATIENT
  Sex: Female

DRUGS (3)
  1. REBIF [Suspect]
     Indication: MULTIPLE SCLEROSIS
     Route: 058
     Dates: start: 200612, end: 201104
  2. REBIF [Suspect]
     Route: 058
     Dates: start: 201205, end: 201210
  3. ALEVE [Concomitant]
     Indication: PREMEDICATION

REACTIONS (5)
  - Intervertebral disc operation [Recovering/Resolving]
  - Peroneal nerve palsy [Not Recovered/Not Resolved]
  - Mobility decreased [Not Recovered/Not Resolved]
  - Influenza like illness [Unknown]
  - Fatigue [Not Recovered/Not Resolved]
